FAERS Safety Report 23816884 (Version 2)
Quarter: 2024Q2

REPORT INFORMATION
  Report Type: Report from Study
  Country: BR (occurrence: BR)
  Receive Date: 20240504
  Receipt Date: 20240624
  Transmission Date: 20240715
  Serious: Yes (Other)
  Sender: FDA-Public Use
  Company Number: BR-002147023-NVSC2024BR041326

PATIENT
  Age: 69 Year
  Sex: Female

DRUGS (6)
  1. KISQALI [Suspect]
     Active Substance: RIBOCICLIB
     Indication: Product used for unknown indication
     Dosage: UNK
     Route: 065
  2. KISQALI [Suspect]
     Active Substance: RIBOCICLIB
     Dosage: 3 TABLETS, QD
     Route: 065
     Dates: start: 20240411
  3. KISQALI [Suspect]
     Active Substance: RIBOCICLIB
     Dosage: UNK
     Route: 065
  4. KISQALI [Suspect]
     Active Substance: RIBOCICLIB
     Dosage: UNK
     Route: 065
  5. KISQALI [Suspect]
     Active Substance: RIBOCICLIB
     Dosage: 2 DOSAGE FORM, QD (2 TABLETS)
     Route: 065
  6. KISQALI [Suspect]
     Active Substance: RIBOCICLIB
     Dosage: UNK (LAST CYCLE)
     Route: 065
     Dates: start: 20240617

REACTIONS (3)
  - Decreased immune responsiveness [Recovered/Resolved]
  - Decreased immune responsiveness [Recovering/Resolving]
  - Expired product administered [Unknown]

NARRATIVE: CASE EVENT DATE: 20240125
